FAERS Safety Report 19288260 (Version 1)
Quarter: 2021Q2

REPORT INFORMATION
  Report Type: Spontaneous
  Country: US (occurrence: US)
  Receive Date: 20210522
  Receipt Date: 20210522
  Transmission Date: 20210717
  Serious: No
  Sender: FDA-Public Use
  Company Number: US-ASTRAZENECA-2021A390809

PATIENT
  Age: 64 Year
  Sex: Female
  Weight: 71.7 kg

DRUGS (3)
  1. CARAFATE [Concomitant]
     Active Substance: SUCRALFATE
  2. CRESTOR [Suspect]
     Active Substance: ROSUVASTATIN CALCIUM
     Indication: BLOOD CHOLESTEROL INCREASED
     Route: 048
     Dates: end: 2020
  3. CRESTOR [Suspect]
     Active Substance: ROSUVASTATIN CALCIUM
     Indication: BLOOD CHOLESTEROL INCREASED
     Route: 048
     Dates: start: 2020

REACTIONS (2)
  - Abdominal pain [Not Recovered/Not Resolved]
  - Bile output increased [Unknown]

NARRATIVE: CASE EVENT DATE: 2021
